FAERS Safety Report 22211068 (Version 1)
Quarter: 2023Q2

REPORT INFORMATION
  Report Type: Spontaneous
  Country: DK (occurrence: DK)
  Receive Date: 20230414
  Receipt Date: 20230414
  Transmission Date: 20230722
  Serious: Yes (Hospitalization)
  Sender: FDA-Public Use
  Company Number: None

PATIENT
  Age: 41 Year
  Sex: Female

DRUGS (2)
  1. PROTOPIC [Suspect]
     Active Substance: TACROLIMUS
     Indication: Lichen sclerosus
     Dosage: 2 DOSAGE FORMS
     Dates: start: 2022, end: 20221219
  2. PROTOPIC [Suspect]
     Active Substance: TACROLIMUS
     Indication: Lichen sclerosus
     Dosage: 2 DOSAGE FORMS
     Dates: start: 2022, end: 20221219

REACTIONS (7)
  - Peripheral swelling [Recovered/Resolved]
  - Product use in unapproved indication [Unknown]
  - Headache [Recovered/Resolved]
  - Chills [Recovered/Resolved]
  - Arthralgia [Recovered/Resolved]
  - Fatigue [Recovered/Resolved]
  - Hot flush [Recovered/Resolved]

NARRATIVE: CASE EVENT DATE: 20221219
